FAERS Safety Report 8522012-9 (Version None)
Quarter: 2012Q3

REPORT INFORMATION
  Report Type: 
  Country: None (occurrence: None)
  Receive Date: 20120719
  Receipt Date: 20090520
  Transmission Date: 20120928
  Serious: Yes (Other)
  Sender: FDA-Public Use
  Company Number: CO-PFIZER INC-2012170851

PATIENT
  Age: 62 Year
  Sex: Female

DRUGS (9)
  1. NORVASC [Suspect]
     Dosage: 5 MG, 1X/DAY
     Route: 065
  2. OLMESARTAN MEDOXOMIL AND HYDROCHLOROTHIZIDE [Suspect]
     Dosage: [OLMESARTAN MEDOXOMIL 20 MG]/[HYDROCHLOROTHIAZIDE 12.5MG], 1X/DAY
     Route: 065
  3. ACETYLSALICYLIC ACID [Concomitant]
     Dosage: 100 MG, 1X/DAY
     Route: 065
  4. LIPITOR [Suspect]
     Dosage: 10 MG, 1X/DAY
     Route: 065
  5. GLIBENCLAMIDE [Concomitant]
     Dosage: 5 MG, 2X/DAY
     Route: 065
  6. HYDROCHLOROTHIAZIDE [Concomitant]
     Dosage: 25 MG, 1X/DAY
     Route: 065
  7. LOSARTAN [Concomitant]
     Dosage: 50 MG, 2X/DAY
     Route: 065
  8. CIPROFLOXACIN HYDROCHLORIDE [Concomitant]
     Dosage: 500 MG, 2X/DAY
     Route: 065
  9. METFORMIN [Concomitant]
     Dosage: 850 MG, 2X/DAY
     Route: 065

REACTIONS (4)
  - CRYSTALLURIA [None]
  - SKIN ULCER [None]
  - HAEMATURIA [None]
  - PYURIA [None]
